FAERS Safety Report 6446973-7 (Version None)
Quarter: 2009Q4

REPORT INFORMATION
  Report Type: 
  Country: None (occurrence: None)
  Receive Date: 20091119
  Receipt Date: 20091105
  Transmission Date: 20100525
  Serious: Yes (Hospitalization, Other)
  Sender: FDA-Public Use
  Company Number: DE-BAUSCH-2009BL005609

PATIENT
  Age: 15 Month
  Sex: Female

DRUGS (1)
  1. MYDRUM AUGENTROPFEN [Suspect]
     Indication: DRUG USE FOR UNKNOWN INDICATION
     Route: 047
     Dates: start: 20091022, end: 20091022

REACTIONS (2)
  - EPILEPSY [None]
  - INCORRECT DOSE ADMINISTERED [None]
